FAERS Safety Report 8598225-7 (Version None)
Quarter: 2012Q3

REPORT INFORMATION
  Report Type: 
  Country: None (occurrence: None)
  Receive Date: 20120816
  Receipt Date: 20120809
  Transmission Date: 20120928
  Serious: Yes (Death, Other)
  Sender: FDA-Public Use
  Company Number: US-CELGENEUS-163-21880-12081198

PATIENT

DRUGS (2)
  1. REVLIMID [Suspect]
     Dosage: 50 MILLIGRAM
     Route: 048
  2. REVLIMID [Suspect]
     Dosage: 10 MILLIGRAM
     Route: 048

REACTIONS (32)
  - RESPIRATORY FAILURE [None]
  - MUSCULAR WEAKNESS [None]
  - PNEUMONITIS [None]
  - VOMITING [None]
  - INDURATION [None]
  - SKIN DISORDER [None]
  - ALANINE AMINOTRANSFERASE [None]
  - BLOOD CREATININE [None]
  - DIARRHOEA [None]
  - OESOPHAGEAL INFECTION [None]
  - HYPOKALAEMIA [None]
  - PERIPHERAL MOTOR NEUROPATHY [None]
  - FEBRILE NEUTROPENIA [None]
  - HYPERGLYCAEMIA [None]
  - COUGH [None]
  - FATIGUE [None]
  - RASH [None]
  - HYPERNATRAEMIA [None]
  - BLOOD BILIRUBIN [None]
  - SEPSIS [None]
  - ACUTE RESPIRATORY DISTRESS SYNDROME [None]
  - NAUSEA [None]
  - HYPONATRAEMIA [None]
  - GINGIVAL INFECTION [None]
  - LUNG INFECTION [None]
  - SKIN INFECTION [None]
  - DYSPNOEA [None]
  - ASPARTATE AMINOTRANSFERASE [None]
  - DECREASED APPETITE [None]
  - RENAL FAILURE [None]
  - MYOCARDIAL ISCHAEMIA [None]
  - HYPOCALCAEMIA [None]
